FAERS Safety Report 26111103 (Version 2)
Quarter: 2025Q4

REPORT INFORMATION
  Report Type: Spontaneous
  Country: US (occurrence: US)
  Receive Date: 20251202
  Receipt Date: 20251203
  Transmission Date: 20260118
  Serious: No
  Sender: ROCHE
  Company Number: US-ROCHE-10000441191

PATIENT
  Age: 18 Year
  Sex: Female

DRUGS (2)
  1. XOLAIR [Suspect]
     Active Substance: OMALIZUMAB
     Indication: Food allergy
     Dosage: 150 MG PEN AND ONE 300 MG PEN= TOTAL DOSE- 450 MG
     Route: 058
     Dates: start: 202508
  2. XOLAIR [Suspect]
     Active Substance: OMALIZUMAB
     Indication: Adverse food reaction

REACTIONS (5)
  - Device defective [Unknown]
  - Accidental exposure to product [Unknown]
  - Wrong technique in device usage process [Unknown]
  - Product complaint [Unknown]
  - No adverse event [Unknown]

NARRATIVE: CASE EVENT DATE: 20251117
